FAERS Safety Report 7057965-1 (Version None)
Quarter: 2010Q4

REPORT INFORMATION
  Report Type: 
  Country: None (occurrence: None)
  Receive Date: 20101022
  Receipt Date: 20101011
  Transmission Date: 20110411
  Serious: Yes (Other)
  Sender: FDA-Public Use
  Company Number: US-PFIZER INC-2010066390

PATIENT
  Sex: Female
  Weight: 86.2 kg

DRUGS (3)
  1. LYRICA [Suspect]
     Indication: PAIN
     Dosage: 75 MG IN THE MORNING AND 150 MG IN THE EVENING
     Route: 048
     Dates: start: 20080601, end: 20091201
  2. HYDROCHLOROTHIAZIDE [Concomitant]
     Indication: HYPERTENSION
     Dosage: 25 MG, UNK
  3. AMITRIPTYLINE [Concomitant]
     Dosage: UNK

REACTIONS (5)
  - BLOOD CHOLESTEROL ABNORMAL [None]
  - CONVULSION [None]
  - LOSS OF CONSCIOUSNESS [None]
  - ROAD TRAFFIC ACCIDENT [None]
  - SCREAMING [None]
